FAERS Safety Report 14225613 (Version 1)
Quarter: 2017Q4

REPORT INFORMATION
  Report Type: Spontaneous
  Country: US (occurrence: US)
  Receive Date: 20171126
  Receipt Date: 20171126
  Transmission Date: 20180321
  Serious: No
  Sender: FDA-Public Use
  Company Number: None

PATIENT
  Age: 55 Year
  Sex: Female
  Weight: 74.7 kg

DRUGS (5)
  1. MUCINEX D [Suspect]
     Active Substance: GUAIFENESIN\PSEUDOEPHEDRINE HYDROCHLORIDE
     Indication: OROPHARYNGEAL PAIN
     Dosage: ?          QUANTITY:24 TABLET(S);?
     Route: 048
     Dates: start: 20171124, end: 20171125
  2. ENZYMES [Concomitant]
  3. VITAMINS [Concomitant]
     Active Substance: VITAMINS
  4. LIPITOR [Concomitant]
     Active Substance: ATORVASTATIN CALCIUM
  5. VITAMIN D [Concomitant]
     Active Substance: CHOLECALCIFEROL

REACTIONS (1)
  - Rash [None]

NARRATIVE: CASE EVENT DATE: 20171126
